FAERS Safety Report 18827086 (Version 1)
Quarter: 2021Q1

REPORT INFORMATION
  Report Type: Spontaneous
  Country: US (occurrence: US)
  Receive Date: 20210201
  Receipt Date: 20210201
  Transmission Date: 20210419
  Serious: No
  Sender: FDA-Public Use
  Company Number: US-ABBVIE-20K-163-3448100-00

PATIENT

DRUGS (3)
  1. HUMIRA [Suspect]
     Active Substance: ADALIMUMAB
     Indication: ANKYLOSING SPONDYLITIS
     Route: 058
  2. MELOXICAM. [Concomitant]
     Active Substance: MELOXICAM
     Indication: PRODUCT USED FOR UNKNOWN INDICATION
  3. METHOTREXATE. [Concomitant]
     Active Substance: METHOTREXATE
     Indication: PRODUCT USED FOR UNKNOWN INDICATION

REACTIONS (14)
  - Therapeutic response shortened [Unknown]
  - Pruritus [Unknown]
  - Urticaria [Unknown]
  - Peripheral swelling [Unknown]
  - Drug specific antibody present [Unknown]
  - Inflammation [Unknown]
  - Tremor [Unknown]
  - Scar [Unknown]
  - Pain [Unknown]
  - Guttate psoriasis [Unknown]
  - Arthralgia [Unknown]
  - Joint range of motion decreased [Unknown]
  - Acarodermatitis [Unknown]
  - Swelling face [Unknown]
